FAERS Safety Report 25999559 (Version 1)
Quarter: 2025Q4

REPORT INFORMATION
  Report Type: Report from Study
  Country: US (occurrence: US)
  Receive Date: 20251105
  Receipt Date: 20251105
  Transmission Date: 20260118
  Serious: Yes (Hospitalization, Other)
  Sender: JOHNSON AND JOHNSON
  Company Number: US-JNJFOC-20250947887

PATIENT
  Age: 45 Year
  Sex: Male

DRUGS (3)
  1. OPSUMIT [Suspect]
     Active Substance: MACITENTAN
     Indication: Pulmonary arterial hypertension
     Route: 048
     Dates: start: 2025
  2. OPSUMIT [Suspect]
     Active Substance: MACITENTAN
     Route: 048
     Dates: start: 202507
  3. TYVASO [Concomitant]
     Active Substance: TREPROSTINIL
     Indication: Product used for unknown indication
     Dates: start: 202510

REACTIONS (10)
  - Dyspnoea [Not Recovered/Not Resolved]
  - Swelling face [Recovering/Resolving]
  - Loss of consciousness [Recovered/Resolved]
  - Asthenia [Not Recovered/Not Resolved]
  - Blood test abnormal [Not Recovered/Not Resolved]
  - Haemorrhoids [Not Recovered/Not Resolved]
  - Haemorrhage [Not Recovered/Not Resolved]
  - Bacterial infection [Unknown]
  - Weight increased [Not Recovered/Not Resolved]
  - Joint swelling [Not Recovered/Not Resolved]

NARRATIVE: CASE EVENT DATE: 20250101
